FAERS Safety Report 5356795-6 (Version None)
Quarter: 2007Q2

REPORT INFORMATION
  Report Type: 
  Country: None (occurrence: None)
  Receive Date: 20070614
  Receipt Date: 20060718
  Transmission Date: 20071010
  Serious: No
  Sender: FDA-Public Use
  Company Number: US-ASTRAZENECA-2006UW14671

PATIENT
  Age: 66 Year
  Sex: Male
  Weight: 93 kg

DRUGS (7)
  1. ATACAND [Suspect]
     Indication: HYPERTENSION
     Route: 048
  2. FLUOROURACIL [Concomitant]
  3. CAMPTOSAR [Concomitant]
  4. DECADRON [Concomitant]
     Route: 042
  5. KYTRIL [Concomitant]
     Route: 042
  6. LEUCOVORIN CALCIUM [Concomitant]
  7. TAVASTAN [Concomitant]

REACTIONS (1)
  - NEUROPATHY PERIPHERAL [None]
